FAERS Safety Report 8096606-1 (Version None)
Quarter: 2012Q1

REPORT INFORMATION
  Report Type: 
  Country: None (occurrence: None)
  Receive Date: 20120129
  Receipt Date: 20111201
  Transmission Date: 20120608
  Serious: No
  Sender: FDA-Public Use
  Company Number: US-ABBOTT-11P-163-0880011-00

PATIENT
  Age: 21 Year
  Sex: Female

DRUGS (2)
  1. PREVACID [Concomitant]
     Indication: DYSPEPSIA
  2. HUMIRA [Suspect]
     Indication: CROHN'S DISEASE
     Dates: start: 20110902

REACTIONS (2)
  - INJECTION SITE PAPULE [None]
  - INJECTION SITE ERYTHEMA [None]
